FAERS Safety Report 4889293-4 (Version None)
Quarter: 2006Q1

REPORT INFORMATION
  Report Type: 
  Country: None (occurrence: None)
  Receive Date: 20060120
  Receipt Date: 20060120
  Transmission Date: 20060701
  Serious: No
  Sender: FDA-Public Use
  Company Number: None

PATIENT
  Age: 42 Year
  Sex: Female
  Weight: 65.6 kg

DRUGS (2)
  1. ALEMTUZUMAB [Suspect]
     Indication: BONE MARROW TRANSPLANT
     Dosage: 30 MG IV X 2 DAYS
     Route: 042
  2. ALEMTUZUMAB [Suspect]
     Indication: PREMEDICATION
     Dosage: 30 MG IV X 2 DAYS
     Route: 042

REACTIONS (4)
  - CONVULSION [None]
  - INFUSION RELATED REACTION [None]
  - URTICARIA [None]
  - WHEEZING [None]
